FAERS Safety Report 9549011 (Version 1)
Quarter: 2013Q3

REPORT INFORMATION
  Report Type: Spontaneous
  Country: US (occurrence: None)
  Receive Date: 20130705
  Receipt Date: 20130705
  Transmission Date: 20140515
  Serious: Yes (Death)
  Sender: FDA-Public Use
  Company Number: 2013020101

PATIENT
  Age: 27 Year
  Sex: Female

DRUGS (3)
  1. CARISOPRODOL (CARISOPRODOL) [Suspect]
     Route: 048
  2. QUETIAPINE [Suspect]
     Route: 048
  3. ETHANOL (ETHANOL) (UNKNOWN) (ETHANOL) [Suspect]
     Route: 048

REACTIONS (1)
  - Drug abuse [None]
